FAERS Safety Report 7648680-1 (Version None)
Quarter: 2011Q3

REPORT INFORMATION
  Report Type: 
  Country: None (occurrence: None)
  Receive Date: 20110801
  Receipt Date: 20110721
  Transmission Date: 20111222
  Serious: Yes (Other)
  Sender: FDA-Public Use
  Company Number: PHHY2011CH66145

PATIENT
  Age: 60 Year
  Sex: Female
  Weight: 93 kg

DRUGS (8)
  1. BILOL [Concomitant]
     Dosage: 5 MG, UNK
     Route: 048
  2. ATACAND [Concomitant]
     Dosage: UNK
  3. ACETAMINOPHEN [Concomitant]
     Dosage: 4000 MG DAILY
  4. ZOLEDRONOC ACID [Suspect]
     Dosage: UNK
     Route: 042
     Dates: start: 20110501, end: 20110501
  5. METFORMIN HCL [Concomitant]
     Dosage: 2550 MG DAILY
     Route: 048
  6. XENALON [Concomitant]
     Dosage: 100 MG DAILY
  7. ESOMEPRAZOLE MAGNESIUM [Concomitant]
     Dosage: 40 MG DIALY
     Route: 048
  8. CALCIMAGON [Concomitant]
     Dosage: UNK
     Route: 048

REACTIONS (6)
  - HEADACHE [None]
  - C-REACTIVE PROTEIN INCREASED [None]
  - DECREASED APPETITE [None]
  - LEUKOCYTOSIS [None]
  - ARTHRALGIA [None]
  - RED BLOOD CELL SEDIMENTATION RATE INCREASED [None]
